FAERS Safety Report 12347464 (Version 1)
Quarter: 2016Q2

REPORT INFORMATION
  Report Type: Spontaneous
  Country: GB (occurrence: GB)
  Receive Date: 20160509
  Receipt Date: 20160509
  Transmission Date: 20160815
  Serious: Yes (Other)
  Sender: FDA-Public Use
  Company Number: PHHY2012GB138318

PATIENT
  Age: 30 Year
  Sex: Female
  Weight: 63 kg

DRUGS (2)
  1. ONDANSETRON [Suspect]
     Active Substance: ONDANSETRON
     Indication: HYPEREMESIS GRAVIDARUM
     Dosage: 16 MG, QD
     Route: 048
     Dates: start: 20120516, end: 20120522
  2. PROCHLORPERAZINE. [Suspect]
     Active Substance: PROCHLORPERAZINE
     Indication: HYPEREMESIS GRAVIDARUM
     Dosage: 18 MG, QD
     Route: 002
     Dates: start: 20120517, end: 20120522

REACTIONS (3)
  - Maternal exposure during pregnancy [Unknown]
  - Movement disorder [Recovered/Resolved]
  - Generalised tonic-clonic seizure [Recovered/Resolved]

NARRATIVE: CASE EVENT DATE: 20120521
